FAERS Safety Report 8160615-4 (Version None)
Quarter: 2012Q1

REPORT INFORMATION
  Report Type: 
  Country: None (occurrence: None)
  Receive Date: 20120223
  Receipt Date: 20120214
  Transmission Date: 20120608
  Serious: Yes (Disabling)
  Sender: FDA-Public Use
  Company Number: JP-ALLERGAN-1105806US

PATIENT
  Age: 85 Year
  Sex: Male

DRUGS (5)
  1. LUMIGAN [Suspect]
     Indication: GLAUCOMA
     Dosage: 1 GTT, QD
     Route: 047
     Dates: start: 20100114
  2. AZOPT [Concomitant]
     Dosage: UNK
     Dates: start: 20090919
  3. DETANTOL [Concomitant]
     Dosage: UNK
     Dates: start: 20090228
  4. LUMIGAN [Suspect]
  5. TIMOPTOL XE [Concomitant]
     Dosage: UNK
     Dates: start: 20071207

REACTIONS (1)
  - VISUAL FIELD DEFECT [None]
